FAERS Safety Report 14747512 (Version 3)
Quarter: 2018Q2

REPORT INFORMATION
  Report Type: Spontaneous
  Country: US (occurrence: US)
  Receive Date: 20180411
  Receipt Date: 20180420
  Transmission Date: 20180711
  Serious: Yes (Hospitalization, Other)
  Sender: FDA-Public Use
  Company Number: US-PFIZER INC-2018145458

PATIENT
  Age: 15 Year
  Sex: Male

DRUGS (2)
  1. METHYLPHENIDATE HYDROCHLORIDE. [Suspect]
     Active Substance: METHYLPHENIDATE HYDROCHLORIDE
     Dosage: 5 MG, UNK (IMMEDIATE-RELEASE)
  2. METHYLPHENIDATE HYDROCHLORIDE. [Suspect]
     Active Substance: METHYLPHENIDATE HYDROCHLORIDE
     Dosage: 36 MG, UNK, (36 MG, UNK (EXTENDED-RELEASE)

REACTIONS (6)
  - Agitation [Unknown]
  - Suicide attempt [Unknown]
  - Overdose [Unknown]
  - Tachycardia [Unknown]
  - Toxicity to various agents [Recovered/Resolved]
  - Hypertension [Unknown]
